FAERS Safety Report 12201961 (Version 2)
Quarter: 2016Q2

REPORT INFORMATION
  Report Type: Spontaneous
  Country: JP (occurrence: JP)
  Receive Date: 20160322
  Receipt Date: 20160617
  Transmission Date: 20160815
  Serious: Yes (Hospitalization, Other)
  Sender: FDA-Public Use
  Company Number: JP-UCBSA-2016010568

PATIENT
  Age: 35 Year
  Sex: Female

DRUGS (4)
  1. PENICILLIN G [Concomitant]
     Active Substance: PENICILLIN G
     Indication: NEUROSYPHILIS
     Dosage: UNKNOWN DOSE
  2. ACYCLOVIR. [Concomitant]
     Active Substance: ACYCLOVIR
     Indication: PRODUCT USED FOR UNKNOWN INDICATION
     Dosage: UNKNOWN DOSE
  3. PHENYTOIN. [Concomitant]
     Active Substance: PHENYTOIN
     Indication: PRODUCT USED FOR UNKNOWN INDICATION
     Dosage: UNKNOWN DOSE
  4. E KEPPRA [Suspect]
     Active Substance: LEVETIRACETAM
     Indication: EPILEPSY
     Dosage: UNKNOWN DOSE
     Route: 048

REACTIONS (3)
  - Abortion induced [Unknown]
  - Pregnancy [Unknown]
  - Neurosyphilis [Recovering/Resolving]
